FAERS Safety Report 7579693-6 (Version None)
Quarter: 2011Q2

REPORT INFORMATION
  Report Type: 
  Country: None (occurrence: None)
  Receive Date: 20110622
  Receipt Date: 20110610
  Transmission Date: 20111010
  Serious: Yes (Other)
  Sender: FDA-Public Use
  Company Number: 948262

PATIENT
  Age: 70 Year

DRUGS (1)
  1. 5% LIDOCAINE HCL AND 7.5% DEXTROSE INJECTION, USP, AMPUL (LIDOCAINE HY [Suspect]
     Indication: PRODUCT USED FOR UNKNOWN INDICATION
     Dosage: INTRADISCAL (INTRASPINAL)
     Route: 024

REACTIONS (2)
  - BURNING SENSATION [None]
  - CAUDA EQUINA SYNDROME [None]
